FAERS Safety Report 8081616-0 (Version None)
Quarter: 2012Q1

REPORT INFORMATION
  Report Type: 
  Country: None (occurrence: None)
  Receive Date: 20120130
  Receipt Date: 20120120
  Transmission Date: 20120608
  Serious: Yes (Other)
  Sender: FDA-Public Use
  Company Number: GB-ASTRAZENECA-2012SE04165

PATIENT
  Age: 34 Year

DRUGS (3)
  1. SEROQUEL [Suspect]
     Indication: DEPRESSION
     Route: 048
     Dates: start: 20120102, end: 20120104
  2. FLUOXETINE [Concomitant]
     Indication: DEPRESSION
     Route: 048
  3. LITHIUM CARBONATE [Concomitant]
     Indication: DEPRESSION

REACTIONS (4)
  - SLEEP TERROR [None]
  - TEARFULNESS [None]
  - DEPRESSION [None]
  - DREAMY STATE [None]
